FAERS Safety Report 6371565-8 (Version None)
Quarter: 2009Q3

REPORT INFORMATION
  Report Type: 
  Country: None (occurrence: None)
  Receive Date: 20090923
  Receipt Date: 20080208
  Transmission Date: 20100115
  Serious: Yes (Hospitalization)
  Sender: FDA-Public Use
  Company Number: US-ASTRAZENECA-2007UW18095

PATIENT
  Age: 492 Month
  Sex: Female
  Weight: 71.9 kg

DRUGS (8)
  1. SEROQUEL [Suspect]
     Indication: SLEEP DISORDER
     Route: 048
     Dates: start: 20020801, end: 20050101
  2. SEROQUEL [Suspect]
     Route: 048
     Dates: start: 20020827
  3. PAXIL [Concomitant]
     Dates: start: 19981213
  4. HYDROCHLOROTHIAZIDE [Concomitant]
     Dosage: 1 A DAY IN THE AM
     Dates: start: 20020827
  5. DEPAKOTE [Concomitant]
     Dosage: 2 IN THE AM AND 1 IN THE PM
     Dates: start: 19950905
  6. INDERAL LA [Concomitant]
     Dosage: 120 IN THE AM
     Dates: start: 19950905
  7. XANAX [Concomitant]
     Indication: SEDATION
     Dates: start: 19950905
  8. XANAX [Concomitant]
     Indication: ANXIETY
     Dates: start: 19950905

REACTIONS (3)
  - DIABETES MELLITUS INADEQUATE CONTROL [None]
  - GLUCOSE TOLERANCE IMPAIRED [None]
  - TYPE 2 DIABETES MELLITUS [None]
